FAERS Safety Report 23773568 (Version 1)
Quarter: 2024Q2

REPORT INFORMATION
  Report Type: Spontaneous
  Country: CN (occurrence: CN)
  Receive Date: 20240423
  Receipt Date: 20240423
  Transmission Date: 20240716
  Serious: Yes (Other)
  Sender: FDA-Public Use
  Company Number: CN-PFIZER INC-PV202400050767

PATIENT
  Age: 50 Year
  Sex: Male

DRUGS (9)
  1. AXITINIB [Suspect]
     Active Substance: AXITINIB
     Indication: Clear cell renal cell carcinoma
     Dosage: UNK, CYCLIC
     Route: 048
     Dates: start: 201909, end: 201912
  2. AXITINIB [Suspect]
     Active Substance: AXITINIB
     Indication: Thrombosis
  3. SUNITINIB MALATE [Suspect]
     Active Substance: SUNITINIB MALATE
     Indication: Thrombosis
     Dosage: 50 MG, CYCLIC (4 WEEKS OF TREATMENT AND 2 WEEKS OF WITHDRAWAL WERE DIVIDED INTO ONE CYCLE)
     Route: 048
     Dates: start: 202003, end: 202204
  4. SUNITINIB MALATE [Suspect]
     Active Substance: SUNITINIB MALATE
     Indication: Clear cell renal cell carcinoma
  5. PAZOPANIB [Suspect]
     Active Substance: PAZOPANIB
     Indication: Clear cell renal cell carcinoma
     Dosage: UNK, CYCLIC
     Route: 048
     Dates: start: 201912, end: 202003
  6. PAZOPANIB [Suspect]
     Active Substance: PAZOPANIB
     Indication: Thrombosis
  7. TISLELIZUMAB [Suspect]
     Active Substance: TISLELIZUMAB
     Indication: Clear cell renal cell carcinoma
     Dosage: 200 MG, CYCLIC (3 TIMES A WEEK, 6 TIMES)
     Route: 048
     Dates: start: 202003, end: 202007
  8. TISLELIZUMAB [Suspect]
     Active Substance: TISLELIZUMAB
     Indication: Thrombosis
     Dosage: 200 MG, CYCLIC (3 TIMES A WEEK, 9 TIMES)
     Route: 048
     Dates: start: 202010, end: 202104
  9. TISLELIZUMAB [Suspect]
     Active Substance: TISLELIZUMAB
     Dosage: 200 MG, CYCLIC (3 TIMES A WEEK, 12 TIMES)
     Route: 048
     Dates: start: 202108, end: 202204

REACTIONS (5)
  - Renal impairment [Recovering/Resolving]
  - Myelosuppression [Recovering/Resolving]
  - Hypothyroidism [Recovering/Resolving]
  - White blood cell count decreased [Recovering/Resolving]
  - Platelet count decreased [Recovering/Resolving]

NARRATIVE: CASE EVENT DATE: 20191001
